FAERS Safety Report 12463647 (Version 1)
Quarter: 2016Q2

REPORT INFORMATION
  Report Type: Spontaneous
  Country: US (occurrence: None)
  Receive Date: 20160613
  Receipt Date: 20160613
  Transmission Date: 20160815
  Serious: Yes (Life-Threatening, Other)
  Sender: FDA-Public Use
  Company Number: None

PATIENT
  Age: 42 Year
  Sex: Female
  Weight: 74.84 kg

DRUGS (4)
  1. BACLOFEN, 10 MG UNKNOWN [Suspect]
     Active Substance: BACLOFEN
     Indication: MUSCLE SPASMS
     Route: 048
     Dates: start: 20160511, end: 20160517
  2. SYNTHROID [Concomitant]
     Active Substance: LEVOTHYROXINE SODIUM
  3. MOTRIN [Concomitant]
     Active Substance: IBUPROFEN
  4. NUVARING [Concomitant]
     Active Substance: ETHINYL ESTRADIOL\ETONOGESTREL

REACTIONS (11)
  - Insomnia [None]
  - Urticaria [None]
  - Hypersensitivity [None]
  - Confusional state [None]
  - Muscle spasms [None]
  - Mouth swelling [None]
  - Eye swelling [None]
  - Lip swelling [None]
  - Swelling face [None]
  - Pharyngeal oedema [None]
  - Oropharyngeal pain [None]

NARRATIVE: CASE EVENT DATE: 20160513
